FAERS Safety Report 24956869 (Version 2)
Quarter: 2025Q1

REPORT INFORMATION
  Report Type: Spontaneous
  Country: US (occurrence: US)
  Receive Date: 20250211
  Receipt Date: 20250220
  Transmission Date: 20250408
  Serious: Yes (Other)
  Sender: PFIZER
  Company Number: US-PFIZER INC-PV202500015179

PATIENT
  Age: 49 Year
  Sex: Female

DRUGS (3)
  1. LORBRENA [Suspect]
     Active Substance: LORLATINIB
     Dates: start: 202310
  2. LORBRENA [Suspect]
     Active Substance: LORLATINIB
     Dates: start: 202311
  3. LORBRENA [Suspect]
     Active Substance: LORLATINIB
     Dates: start: 202312

REACTIONS (6)
  - Neuropathy peripheral [Not Recovered/Not Resolved]
  - Weight increased [Unknown]
  - Blood cholesterol increased [Unknown]
  - Carpal tunnel syndrome [Unknown]
  - Swelling [Not Recovered/Not Resolved]
  - Oedema [Not Recovered/Not Resolved]

NARRATIVE: CASE EVENT DATE: 20231001
